FAERS Safety Report 19465859 (Version 6)
Quarter: 2022Q1

REPORT INFORMATION
  Report Type: Report from Study
  Country: EG (occurrence: EG)
  Receive Date: 20210626
  Receipt Date: 20220330
  Transmission Date: 20220424
  Serious: Yes (Other)
  Sender: FDA-Public Use
  Company Number: NVSC2021EG141215

PATIENT
  Age: 24 Year
  Sex: Female

DRUGS (5)
  1. GILENYA [Suspect]
     Active Substance: FINGOLIMOD HYDROCHLORIDE
     Indication: Multiple sclerosis
     Dosage: 0.5 MG, QD
     Route: 048
     Dates: start: 202009, end: 20210612
  2. GILENYA [Suspect]
     Active Substance: FINGOLIMOD HYDROCHLORIDE
     Dosage: 0.5 MG, QD
     Route: 048
  3. VITAMIN D [Concomitant]
     Active Substance: VITAMIN D NOS
     Indication: Product used for unknown indication
     Dosage: 1 DF, QD
     Route: 065
  4. CALCIMAT [Concomitant]
     Indication: Mineral supplementation
     Dosage: UNK, QD
     Route: 065
     Dates: start: 202203
  5. OSSOFORTIN [Concomitant]
     Indication: Vitamin supplementation
     Dosage: TWICE/WEEK
     Route: 065
     Dates: start: 2021

REACTIONS (14)
  - Blood pressure fluctuation [Recovering/Resolving]
  - Movement disorder [Recovered/Resolved]
  - Irritability [Not Recovered/Not Resolved]
  - Fall [Unknown]
  - Feeling abnormal [Not Recovered/Not Resolved]
  - Headache [Unknown]
  - Dyspnoea [Recovered/Resolved]
  - Stress [Recovered/Resolved]
  - Depression [Not Recovered/Not Resolved]
  - Screaming [Not Recovered/Not Resolved]
  - Aggression [Not Recovered/Not Resolved]
  - Nervousness [Recovered/Resolved]
  - Alopecia [Unknown]
  - Coccydynia [Not Recovered/Not Resolved]

NARRATIVE: CASE EVENT DATE: 20200901
